FAERS Safety Report 7125411-5 (Version None)
Quarter: 2010Q4

REPORT INFORMATION
  Report Type: 
  Country: None (occurrence: None)
  Receive Date: 20101129
  Receipt Date: 20101119
  Transmission Date: 20110411
  Serious: Yes (Life-Threatening, Hospitalization, Other)
  Sender: FDA-Public Use
  Company Number: US-ELI_LILLY_AND_COMPANY-US201011006122

PATIENT
  Age: 64 Year

DRUGS (1)
  1. EFFIENT [Suspect]
     Indication: ISCHAEMIC HEART DISEASE PROPHYLAXIS
     Dosage: 10 MG, ONLY RECEIVED ONE DOSE
     Route: 065

REACTIONS (2)
  - PULMONARY OEDEMA [None]
  - RASH [None]
